FAERS Safety Report 4680197-9 (Version None)
Quarter: 2005Q2

REPORT INFORMATION
  Report Type: 
  Country: None (occurrence: None)
  Receive Date: 20050525
  Receipt Date: 20050404
  Transmission Date: 20051028
  Serious: No
  Sender: FDA-Public Use
  Company Number: SU-2005-003386

PATIENT
  Age: 42 Year
  Sex: Male
  Weight: 98.8842 kg

DRUGS (2)
  1. BENICAR [Suspect]
     Indication: HYPERTENSION
     Dosage: 40 MG QD PO
     Route: 048
     Dates: start: 20040801, end: 20040801
  2. BENICAR HCT [Suspect]
     Indication: HYPERTENSION
     Dosage: MG DAILY PO
     Route: 048
     Dates: start: 20050101

REACTIONS (1)
  - DIZZINESS [None]
